FAERS Safety Report 24556275 (Version 1)
Quarter: 2024Q4

REPORT INFORMATION
  Report Type: Spontaneous
  Country: IT (occurrence: IT)
  Receive Date: 20241028
  Receipt Date: 20241028
  Transmission Date: 20250115
  Serious: Yes (Hospitalization, Other)
  Sender: WAYLIS THERAPEUTICS LLC
  Company Number: None

PATIENT
  Age: 38 Year
  Sex: Male

DRUGS (2)
  1. VALIUM [Suspect]
     Active Substance: DIAZEPAM
     Indication: Anxiety
     Dosage: ASSUNTO 1 FLACONE IN DATA 05/10 E 1/2 IN DATA 06/10.?TAKEN 1 BOTTLE ON 05/10 AND 1/2 ON 06/10.
     Route: 050
  2. SODIUM OXYBATE [Suspect]
     Active Substance: SODIUM OXYBATE
     Indication: Alcohol abuse
     Dosage: ASSUNTI 2 FLACONI IN DATA 05/10 E 3 FLACONI IN DATA 06/10.?875 MG/ML TOTALI??TAKEN 2 VIALS ON 05/...
     Route: 050

REACTIONS (4)
  - Tachycardia [Recovered/Resolved]
  - Vomiting [Recovered/Resolved]
  - Hypotension [Recovered/Resolved]
  - Drug abuse [Recovered/Resolved]

NARRATIVE: CASE EVENT DATE: 20241006
